APPROVED DRUG PRODUCT: SOLATENE
Active Ingredient: BETA CAROTENE
Strength: 30MG
Dosage Form/Route: CAPSULE;ORAL
Application: N017589 | Product #001
Applicant: HOFFMANN LA ROCHE INC
Approved: Approved Prior to Jan 1, 1982 | RLD: No | RS: No | Type: DISCN